FAERS Safety Report 4822206-X (Version None)
Quarter: 2005Q4

REPORT INFORMATION
  Report Type: 
  Country: None (occurrence: None)
  Receive Date: 20051103
  Receipt Date: 20051013
  Transmission Date: 20060501
  Serious: Yes (Other)
  Sender: FDA-Public Use
  Company Number: USA0510110740

PATIENT
  Age: 44 Year
  Sex: Female

DRUGS (3)
  1. CYMBALTA [Suspect]
     Indication: DEPRESSION
     Dosage: 80 MG
     Dates: start: 20050301, end: 20050101
  2. ARIMIDEX [Concomitant]
  3. SEROQUEL [Concomitant]

REACTIONS (8)
  - AFFECT LABILITY [None]
  - BREAST CANCER RECURRENT [None]
  - DEPRESSION [None]
  - DIZZINESS [None]
  - HYPERHIDROSIS [None]
  - IRRITABILITY [None]
  - PARAESTHESIA [None]
  - SYNCOPE [None]
